FAERS Safety Report 5341746-0 (Version None)
Quarter: 2007Q2

REPORT INFORMATION
  Report Type: 
  Country: None (occurrence: None)
  Receive Date: 20070529
  Receipt Date: 20070529
  Transmission Date: 20071010
  Serious: Yes (Hospitalization)
  Sender: FDA-Public Use
  Company Number: None

PATIENT
  Age: 41 Year
  Sex: Male

DRUGS (1)
  1. CIPRO [Suspect]
     Indication: INFECTION
     Dosage: 400 MG IV
     Route: 042
     Dates: start: 20060713, end: 20060715

REACTIONS (3)
  - CARDIOVASCULAR DISORDER [None]
  - CHEST DISCOMFORT [None]
  - CHEST PAIN [None]
